FAERS Safety Report 8214263-8 (Version None)
Quarter: 2012Q1

REPORT INFORMATION
  Report Type: 
  Country: None (occurrence: None)
  Receive Date: 20120316
  Receipt Date: 20120307
  Transmission Date: 20120608
  Serious: Yes (Other)
  Sender: FDA-Public Use
  Company Number: GB-JNJFOC-20120304115

PATIENT
  Sex: Male

DRUGS (3)
  1. OMEPRAZOLE [Concomitant]
     Route: 065
  2. DICLOFENAC SODIUM [Concomitant]
     Indication: GOUT
     Route: 065
  3. RISPERDAL CONSTA [Suspect]
     Indication: PRODUCT USED FOR UNKNOWN INDICATION
     Route: 030

REACTIONS (5)
  - HYPOTENSION [None]
  - DIZZINESS [None]
  - VISUAL IMPAIRMENT [None]
  - HYPOPNOEA [None]
  - PRURITUS [None]
